FAERS Safety Report 8167242-3 (Version None)
Quarter: 2012Q1

REPORT INFORMATION
  Report Type: 
  Country: None (occurrence: None)
  Receive Date: 20120227
  Receipt Date: 20120221
  Transmission Date: 20120608
  Serious: Yes (Other)
  Sender: FDA-Public Use
  Company Number: US-JNJFOC-20120113286

PATIENT
  Sex: Female
  Weight: 54.43 kg

DRUGS (7)
  1. XARELTO [Suspect]
     Indication: ATRIAL FIBRILLATION
     Route: 048
     Dates: start: 20120119
  2. NASONEX [Concomitant]
     Indication: SINUS DISORDER
     Route: 045
  3. TAZTIA XT [Concomitant]
     Indication: BLOOD PRESSURE
     Route: 048
     Dates: start: 20111001
  4. DIGOXIN [Concomitant]
     Indication: CARDIAC DISORDER
     Route: 048
     Dates: start: 20111001
  5. NEXIUM [Concomitant]
     Route: 048
     Dates: start: 20111001
  6. NIACIN [Concomitant]
     Indication: BLOOD CHOLESTEROL
     Route: 048
  7. CALCIUM [Concomitant]
     Indication: MINERAL SUPPLEMENTATION
     Route: 048

REACTIONS (1)
  - CATARACT [None]
